FAERS Safety Report 6555487-5 (Version None)
Quarter: 2010Q1

REPORT INFORMATION
  Report Type: 
  Country: None (occurrence: None)
  Receive Date: 20100128
  Receipt Date: 20100121
  Transmission Date: 20100710
  Serious: Yes (Other)
  Sender: FDA-Public Use
  Company Number: US-ROCHE-652340

PATIENT
  Sex: Female
  Weight: 55.8 kg

DRUGS (8)
  1. PEG-INTERFERON ALFA 2A (RO 25-8310) [Suspect]
     Route: 058
     Dates: start: 20080918, end: 20090716
  2. RIBAVIRIN [Suspect]
     Dosage: FREQUENCY : 2AM 2PM
     Route: 048
     Dates: start: 20080918, end: 20090716
  3. CELEXA [Concomitant]
     Dates: start: 20081020
  4. ZOFRAN [Concomitant]
     Dosage: EVERY 8 HOURS
     Dates: start: 20090501
  5. AMBIEN [Concomitant]
     Dosage: PRN H.S
     Dates: start: 20090501
  6. NORCO [Concomitant]
     Dosage: GRUG : NORCO 1-2 Q 4-6 PRN,TDD : 5/325
     Dates: start: 20090501
  7. DARVON [Concomitant]
     Dates: start: 20081231
  8. ATIVAN [Concomitant]
     Dosage: HALF AT NIGHT, TOTAL DOSE 1 MG, FOR 15 PILLS ONLY

REACTIONS (1)
  - CATARACT [None]
